FAERS Safety Report 9464022 (Version 1)
Quarter: 2013Q3

REPORT INFORMATION
  Report Type: Spontaneous
  Country: CA (occurrence: CA)
  Receive Date: 20130819
  Receipt Date: 20130819
  Transmission Date: 20140515
  Serious: Yes (Other)
  Sender: FDA-Public Use
  Company Number: CA-PFIZER INC-2013235284

PATIENT
  Age: 66 Year
  Sex: Male

DRUGS (9)
  1. MEDROL [Suspect]
     Dosage: UNK
  2. ACTEMRA [Suspect]
     Indication: RHEUMATOID ARTHRITIS
     Dosage: 688 MG, EVERY 4 WEEKS
     Route: 042
     Dates: start: 20121121
  3. FOLIC ACID [Concomitant]
     Dosage: UNK
  4. METHOTREXATE [Concomitant]
     Dosage: UNK
  5. AMLODIPINE [Concomitant]
     Dosage: UNK
  6. PANTOLOC [Concomitant]
     Dosage: UNK
  7. SULFASALAZINE [Concomitant]
     Dosage: UNK
  8. CELEBREX [Concomitant]
     Dosage: UNK
  9. PRAVASTATIN [Concomitant]
     Dosage: UNK

REACTIONS (2)
  - Rheumatoid arthritis [Recovering/Resolving]
  - Insomnia [Recovering/Resolving]
